FAERS Safety Report 20632119 (Version 1)
Quarter: 2022Q1

REPORT INFORMATION
  Report Type: Spontaneous
  Country: IN (occurrence: IN)
  Receive Date: 20220324
  Receipt Date: 20220324
  Transmission Date: 20220423
  Serious: Yes (Other)
  Sender: FDA-Public Use
  Company Number: IN-PFIZER INC-202101588624

PATIENT
  Age: 38 Year
  Sex: Female

DRUGS (17)
  1. PALBOCICLIB [Suspect]
     Active Substance: PALBOCICLIB
     Dosage: 125 MG 1X/DAY, D1 TO D21 FOLLOWED BY 1 WEEK OFF
     Route: 048
     Dates: start: 20210807
  2. ULTRANURON PLUS [Concomitant]
     Dosage: UNK, 2X/DAY
     Route: 048
  3. TAYO [COLECALCIFEROL] [Concomitant]
     Dosage: 60000 IU, MONTHLY
  4. ZOLADEX [Concomitant]
     Active Substance: GOSERELIN ACETATE
     Dosage: 3.6 MG, MONTHLY
     Route: 058
  5. ZOLEDRONIC ACID [Concomitant]
     Active Substance: ZOLEDRONIC ACID
     Dosage: 4 MG, MONTHLY
     Route: 042
  6. GABAPIN NT [Concomitant]
     Dosage: UNK, 1X/DAY
     Route: 048
  7. PANTOPRAZOLE SODIUM [Concomitant]
     Active Substance: PANTOPRAZOLE SODIUM
     Dosage: 40 MG, 2X/DAY
     Route: 048
  8. LETROZ [Concomitant]
     Dosage: 2.5 MG, 1X/DAY
     Route: 048
  9. CREMAFFIN PLUS [Concomitant]
     Dosage: 2 TSF, 1X/DAY
     Route: 048
  10. FORCAN [Concomitant]
     Dosage: UNK, WEEKLY
     Route: 048
  11. EVION [Concomitant]
     Active Substance: .ALPHA.-TOCOPHEROL ACETATE
     Dosage: 400 MG, 1X/DAY
     Route: 048
  12. ROSUVAS F [Concomitant]
     Dosage: UNK UNK, 1X/DAY
     Route: 048
  13. PANTOCID DSR [Concomitant]
     Dosage: UNK, 2X/DAY
     Route: 048
  14. NAXDOM [Concomitant]
     Route: 048
  15. TOPAZ [Concomitant]
     Dosage: 50 MG, 2X/DAY
     Route: 048
  16. REMYLIN AX [Concomitant]
     Dosage: UNK, 1X/DAY
     Route: 048
  17. CLONAFIT [Concomitant]
     Route: 048

REACTIONS (8)
  - Idiopathic intracranial hypertension [Unknown]
  - Hepatic steatosis [Unknown]
  - Hepatic cyst [Unknown]
  - Pain in extremity [Unknown]
  - Lipids abnormal [Unknown]
  - Neutrophil count decreased [Unknown]
  - Fat tissue increased [Unknown]
  - White blood cell count decreased [Unknown]
